FAERS Safety Report 5449549-3 (Version None)
Quarter: 2007Q3

REPORT INFORMATION
  Report Type: 
  Country: None (occurrence: None)
  Receive Date: 20070907
  Receipt Date: 20070828
  Transmission Date: 20080115
  Serious: Yes (Hospitalization)
  Sender: FDA-Public Use
  Company Number: TPA2007A01563

PATIENT
  Age: 40 Year
  Sex: Female
  Weight: 54.4316 kg

DRUGS (4)
  1. ROZEREM [Suspect]
     Indication: INSOMNIA
     Dosage: 8 MG, 1 IN 1 D, PER ORAL; 8 MG, 1 IN 1 D, PER ORAL
     Route: 048
     Dates: start: 20070206, end: 20070712
  2. ROZEREM [Suspect]
     Indication: INSOMNIA
     Dosage: 8 MG, 1 IN 1 D, PER ORAL; 8 MG, 1 IN 1 D, PER ORAL
     Route: 048
     Dates: start: 20070801
  3. BUPROPION XL (BUPROPION) [Concomitant]
  4. TOPAMAX [Concomitant]

REACTIONS (1)
  - SKIN DISCOLOURATION [None]
